FAERS Safety Report 6265149-X (Version None)
Quarter: 2009Q3

REPORT INFORMATION
  Report Type: 
  Country: None (occurrence: None)
  Receive Date: 20090709
  Receipt Date: 20090709
  Transmission Date: 20100115
  Serious: Yes (Death, Hospitalization)
  Sender: FDA-Public Use
  Company Number: None

PATIENT

DRUGS (1)
  1. METHOTREXATE [Suspect]
     Indication: RHEUMATOID ARTHRITIS
     Dosage: 5 TABLETS WEEKLY
     Dates: start: 20070101, end: 20090101

REACTIONS (2)
  - ACUTE MYELOID LEUKAEMIA [None]
  - DRUG TOXICITY [None]
